FAERS Safety Report 5903284-3 (Version None)
Quarter: 2008Q3

REPORT INFORMATION
  Report Type: 
  Country: None (occurrence: None)
  Receive Date: 20080930
  Receipt Date: 20080923
  Transmission Date: 20090109
  Serious: Yes (Other)
  Sender: FDA-Public Use
  Company Number: A0746134A

PATIENT
  Age: 50 Year
  Sex: Female

DRUGS (6)
  1. ARIXTRA [Suspect]
     Dosage: 2.5MG PER DAY
     Route: 058
     Dates: start: 20080828
  2. VICODIN [Concomitant]
  3. FLEXERIL [Concomitant]
  4. KLONOPIN [Concomitant]
  5. CELEXA [Concomitant]
  6. ALLEGRA [Concomitant]

REACTIONS (5)
  - DEEP VEIN THROMBOSIS [None]
  - DYSPNOEA [None]
  - OEDEMA [None]
  - OEDEMA PERIPHERAL [None]
  - WEIGHT INCREASED [None]
